FAERS Safety Report 25468300 (Version 1)
Quarter: 2025Q2

REPORT INFORMATION
  Report Type: Spontaneous
  Country: US (occurrence: None)
  Receive Date: 20250623
  Receipt Date: 20250623
  Transmission Date: 20250717
  Serious: Yes (Hospitalization)
  Sender: FDA-CTU
  Company Number: None

PATIENT
  Age: 35 Year
  Sex: Female

DRUGS (2)
  1. MACITENTAN\TADALAFIL [Suspect]
     Active Substance: MACITENTAN\TADALAFIL
     Indication: Pulmonary arterial hypertension
     Dosage: 10 MG DAILY ORAL
     Route: 048
     Dates: start: 20250108
  2. REMODULIN [Suspect]
     Active Substance: TREPROSTINIL

REACTIONS (1)
  - Cholecystectomy [None]

NARRATIVE: CASE EVENT DATE: 20250618
